FAERS Safety Report 16327286 (Version 1)
Quarter: 2019Q2

REPORT INFORMATION
  Report Type: Spontaneous
  Country: JP (occurrence: JP)
  Receive Date: 20190517
  Receipt Date: 20190517
  Transmission Date: 20190711
  Serious: Yes (Death, Hospitalization, Other)
  Sender: FDA-Public Use
  Company Number: JP-009507513-1901JPN002842J

PATIENT
  Age: 70 Year
  Sex: Female
  Weight: 42 kg

DRUGS (6)
  1. ACELIO [Concomitant]
     Active Substance: ACETAMINOPHEN
     Indication: PAIN MANAGEMENT
     Dosage: 500 MILLIGRAM, TID
     Route: 041
     Dates: start: 20181221, end: 20190224
  2. BISONO [Concomitant]
     Active Substance: BISOPROLOL
     Indication: ATRIAL FIBRILLATION
     Dosage: 4 MILLIGRAM, QD
     Dates: start: 20181210
  3. KEYTRUDA [Suspect]
     Active Substance: PEMBROLIZUMAB
     Indication: COLON CANCER
     Dosage: 200 MILLIGRAM, Q3W
     Route: 041
     Dates: start: 20181225, end: 20181225
  4. ELNEOPA NF NO. 2 [Concomitant]
     Indication: NUTRITIONAL SUPPLEMENTATION
     Dosage: 2000 MILLILITER, QD
     Route: 041
     Dates: start: 20181115
  5. OXIFAST [Concomitant]
     Active Substance: OXYCODONE
     Dosage: 48 MILLIGRAM, QD
     Route: 058
     Dates: start: 20181213
  6. OMEPRAZOLE. [Concomitant]
     Active Substance: OMEPRAZOLE
     Indication: PROPHYLAXIS AGAINST GASTROINTESTINAL ULCER
     Dosage: 20 MILLIGRAM, BID
     Route: 042
     Dates: start: 20181020, end: 20190224

REACTIONS (3)
  - Meningitis [Recovered/Resolved]
  - Encephalitis [Recovered/Resolved]
  - Death [Fatal]

NARRATIVE: CASE EVENT DATE: 20190115
